FAERS Safety Report 4943454-4 (Version None)
Quarter: 2006Q1

REPORT INFORMATION
  Report Type: 
  Country: None (occurrence: None)
  Receive Date: 20060313
  Receipt Date: 20060313
  Transmission Date: 20060701
  Serious: Yes (Other)
  Sender: FDA-Public Use
  Company Number: None

PATIENT
  Age: 59 Year
  Sex: Male
  Weight: 81.6475 kg

DRUGS (6)
  1. REMICADE [Suspect]
     Indication: RHEUMATOID ARTHRITIS
     Dosage: 250 MG  Q 6 WKS
     Dates: start: 20051114
  2. REMICADE [Suspect]
     Indication: RHEUMATOID ARTHRITIS
     Dosage: 250 MG  Q 6 WKS
     Dates: start: 20051230
  3. REMICADE [Suspect]
     Indication: RHEUMATOID ARTHRITIS
     Dosage: 250 MG  Q 6 WKS
     Dates: start: 20060210
  4. REMICADE [Suspect]
  5. REMICADE [Suspect]
  6. LODINE [Concomitant]

REACTIONS (2)
  - INFUSION RELATED REACTION [None]
  - RASH [None]
